FAERS Safety Report 4478512-4 (Version None)
Quarter: 2004Q4

REPORT INFORMATION
  Report Type: 
  Country: None (occurrence: None)
  Receive Date: 20041019
  Receipt Date: 20041012
  Transmission Date: 20050328
  Serious: Yes (Hospitalization)
  Sender: FDA-Public Use
  Company Number: PHNR2004AU01498

PATIENT
  Age: 71 Year
  Sex: Female

DRUGS (3)
  1. ELIDEL [Suspect]
     Indication: LICHEN SCLEROSUS
     Dosage: UNK, BID
     Route: 061
     Dates: start: 20040401
  2. DIABEX [Concomitant]
  3. ASPIRIN [Concomitant]

REACTIONS (2)
  - DRUG INEFFECTIVE [None]
  - VULVAL CANCER [None]
